FAERS Safety Report 7472794-2 (Version None)
Quarter: 2011Q2

REPORT INFORMATION
  Report Type: 
  Country: None (occurrence: None)
  Receive Date: 20110511
  Receipt Date: 20110502
  Transmission Date: 20111010
  Serious: Yes (Hospitalization)
  Sender: FDA-Public Use
  Company Number: FR-ASTRAZENECA-2011SE25857

PATIENT
  Age: 32783 Day
  Sex: Female

DRUGS (6)
  1. MEDIATENSYL [Suspect]
     Indication: HYPERTENSION
     Route: 048
     Dates: end: 20101122
  2. NICARDIPINE HCL [Suspect]
     Indication: HYPERTENSION
     Route: 048
     Dates: end: 20101122
  3. ZOLPIDEM [Suspect]
     Indication: ANXIETY DISORDER DUE TO A GENERAL MEDICAL CONDITION
     Route: 048
  4. ACETAMINOPHEN [Concomitant]
     Dosage: AS REQUIRED
     Route: 048
  5. VASTAREL [Suspect]
     Route: 048
     Dates: end: 20101125
  6. CANDESARTAN CILEXETIL/HYDROCHROTHIAZIDE [Suspect]
     Indication: HYPERTENSION
     Route: 048
     Dates: end: 20101122

REACTIONS (2)
  - HYPOTENSION [None]
  - FALL [None]
